FAERS Safety Report 4501576-6 (Version None)
Quarter: 2004Q3

REPORT INFORMATION
  Report Type: 
  Country: None (occurrence: None)
  Receive Date: 20040928
  Receipt Date: 20040823
  Transmission Date: 20050211
  Serious: No
  Sender: FDA-Public Use
  Company Number: 04P-163-0271405-00

PATIENT
  Age: 22 Year
  Sex: Female

DRUGS (4)
  1. HUMIRA [Suspect]
     Indication: RHEUMATOID ARTHRITIS
     Dosage: 40 MG, 1 IN 2 WK, SUBCUTANEOUS
     Route: 058
     Dates: start: 20040602, end: 20040707
  2. HUMIRA [Suspect]
     Indication: RHEUMATOID ARTHRITIS
     Dosage: 40 MG, 1 IN 2 WK, SUBCUTANEOUS
     Route: 058
     Dates: start: 20040811
  3. PREDNISONME [Concomitant]
  4. LANSOPRAZOLE [Concomitant]

REACTIONS (4)
  - INJECTION SITE BURNING [None]
  - INJECTION SITE SWELLING [None]
  - PHARYNGITIS STREPTOCOCCAL [None]
  - PNEUMONIA [None]
